FAERS Safety Report 13039166 (Version 1)
Quarter: 2016Q4

REPORT INFORMATION
  Report Type: Spontaneous
  Country: GB (occurrence: GB)
  Receive Date: 20161219
  Receipt Date: 20161219
  Transmission Date: 20170207
  Serious: Yes (Other)
  Sender: FDA-Public Use
  Company Number: PHFR2016GB009772

PATIENT
  Sex: Female

DRUGS (1)
  1. DESFERAL [Suspect]
     Active Substance: DEFEROXAMINE MESYLATE
     Indication: PRODUCT USED FOR UNKNOWN INDICATION
     Dosage: 2.5 G, FIVE TIMES A WEEK (5/WEEK)
     Route: 058

REACTIONS (3)
  - Body temperature abnormal [Unknown]
  - Lower respiratory tract infection [Unknown]
  - Musculoskeletal discomfort [Unknown]
